FAERS Safety Report 4373732-1 (Version None)
Quarter: 2004Q2

REPORT INFORMATION
  Report Type: 
  Country: None (occurrence: None)
  Receive Date: 20040607
  Receipt Date: 20040607
  Transmission Date: 20050107
  Serious: Yes (Other)
  Sender: FDA-Public Use
  Company Number: None

PATIENT
  Sex: Female
  Weight: 107.5025 kg

DRUGS (2)
  1. LIPITOR [Suspect]
     Indication: BLOOD CHOLESTEROL INCREASED
     Dosage: ONCE DAILY
     Dates: start: 20021001, end: 20030531
  2. PREMARIN PATCH [Concomitant]

REACTIONS (4)
  - FATIGUE [None]
  - FEELING ABNORMAL [None]
  - INFLUENZA LIKE ILLNESS [None]
  - PANIC ATTACK [None]
